FAERS Safety Report 4949399-8 (Version None)
Quarter: 2006Q1

REPORT INFORMATION
  Report Type: 
  Country: None (occurrence: None)
  Receive Date: 20060315
  Receipt Date: 20060307
  Transmission Date: 20060701
  Serious: Yes (Hospitalization, Other)
  Sender: FDA-Public Use
  Company Number: 2006AL000635

PATIENT
  Age: 15 Year
  Sex: Female

DRUGS (5)
  1. MINOXIDIL EXTRA STRENGTH (FOR MEN) [Suspect]
     Indication: ALOPECIA
     Dosage: BID; TOP
     Route: 061
     Dates: start: 20051001, end: 20060224
  2. VITAMIN B-12 [Concomitant]
  3. IRON [Concomitant]
  4. ESTROGEN NOS [Concomitant]
  5. PROGESTERONE [Concomitant]

REACTIONS (1)
  - THROMBOCYTOPENIA [None]
